FAERS Safety Report 8536456-2 (Version None)
Quarter: 2012Q3

REPORT INFORMATION
  Report Type: 
  Country: None (occurrence: None)
  Receive Date: 20120725
  Receipt Date: 20120720
  Transmission Date: 20120928
  Serious: Yes (Other)
  Sender: FDA-Public Use
  Company Number: CN-ROCHE-1067467

PATIENT
  Age: 63 Year
  Sex: Male
  Weight: 74 kg

DRUGS (7)
  1. XELODA [Suspect]
     Route: 048
     Dates: start: 20120301, end: 20120713
  2. ADEFOVIR DIPIVOXIL [Concomitant]
     Indication: HEPATITIS B
     Route: 048
  3. XELODA [Suspect]
     Indication: HEPATIC CANCER METASTATIC
     Route: 048
     Dates: start: 20071101, end: 20080101
  4. XELODA [Suspect]
     Route: 048
     Dates: start: 20100101
  5. LAMIVUDINE [Concomitant]
     Indication: HEPATITIS B
     Route: 048
  6. XELODA [Suspect]
     Route: 048
     Dates: start: 20090101
  7. NEXAVAR [Concomitant]
     Indication: HEPATIC CANCER METASTATIC
     Route: 048
     Dates: start: 20071201

REACTIONS (12)
  - METASTASES TO LUNG [None]
  - PALMAR-PLANTAR ERYTHRODYSAESTHESIA SYNDROME [None]
  - ASTHENIA [None]
  - EAR PAIN [None]
  - RASH MACULAR [None]
  - PRODUCTIVE COUGH [None]
  - SKIN DISCOLOURATION [None]
  - OROPHARYNGEAL PAIN [None]
  - IMMUNODEFICIENCY [None]
  - DIARRHOEA [None]
  - LETHARGY [None]
  - TOOTHACHE [None]
